FAERS Safety Report 5334772-9 (Version None)
Quarter: 2007Q2

REPORT INFORMATION
  Report Type: 
  Country: None (occurrence: None)
  Receive Date: 20070525
  Receipt Date: 20070518
  Transmission Date: 20071010
  Serious: Yes (Hospitalization, Other)
  Sender: FDA-Public Use
  Company Number: ES-AMGEN-UK215449

PATIENT
  Sex: Male

DRUGS (6)
  1. ARANESP [Suspect]
     Indication: MYELODYSPLASTIC SYNDROME
     Route: 058
     Dates: start: 20061220, end: 20070125
  2. VALSARTAN [Concomitant]
  3. TRAMADOL HCL [Concomitant]
  4. BENADON [Concomitant]
  5. DIMETICONE [Concomitant]
  6. PENTOXIFYLLINE [Concomitant]

REACTIONS (6)
  - ANAEMIA [None]
  - CHOLELITHIASIS [None]
  - DUODENAL POLYP [None]
  - SUPRAVENTRICULAR TACHYCARDIA [None]
  - THROMBOCYTOPENIA [None]
  - UPPER GASTROINTESTINAL HAEMORRHAGE [None]
